FAERS Safety Report 5146313-X (Version None)
Quarter: 2006Q4

REPORT INFORMATION
  Report Type: 
  Country: None (occurrence: None)
  Receive Date: 20061102
  Receipt Date: 20061020
  Transmission Date: 20070319
  Serious: Yes (Other)
  Sender: FDA-Public Use
  Company Number: 2006129755

PATIENT
  Sex: Female

DRUGS (1)
  1. LYRICA [Suspect]
     Indication: PAIN
     Dosage: 50 MG (50 MG, 1 IN 1 D)
     Dates: start: 20060101

REACTIONS (7)
  - BURNING SENSATION [None]
  - DRUG EFFECT DECREASED [None]
  - EYE PENETRATION [None]
  - FALL [None]
  - GAIT DISTURBANCE [None]
  - HYPERSOMNIA [None]
  - SCAR [None]
